FAERS Safety Report 6654348-0 (Version None)
Quarter: 2010Q1

REPORT INFORMATION
  Report Type: 
  Country: None (occurrence: None)
  Receive Date: 20100326
  Receipt Date: 20100318
  Transmission Date: 20100710
  Serious: Yes (Other)
  Sender: FDA-Public Use
  Company Number: GB-PFIZER INC-2010034648

PATIENT
  Age: 70 Year
  Sex: Male
  Weight: 80 kg

DRUGS (1)
  1. AMLODIPINE BESYLATE [Suspect]
     Dosage: UNK
     Route: 048

REACTIONS (1)
  - VITREOUS FLOATERS [None]
